FAERS Safety Report 12320640 (Version 1)
Quarter: 2016Q2

REPORT INFORMATION
  Report Type: Spontaneous
  Country: US (occurrence: US)
  Receive Date: 20160501
  Receipt Date: 20160501
  Transmission Date: 20160815
  Serious: No
  Sender: FDA-Public Use
  Company Number: US-BIOGEN-2016BI00230452

PATIENT
  Sex: Female

DRUGS (1)
  1. AVONEX [Suspect]
     Active Substance: INTERFERON BETA-1A
     Indication: MULTIPLE SCLEROSIS
     Route: 065
     Dates: start: 20010416, end: 20090101

REACTIONS (10)
  - Nausea [Unknown]
  - Injection site bruising [Unknown]
  - Gait disturbance [Recovered/Resolved]
  - Influenza like illness [Unknown]
  - Injection site reaction [Unknown]
  - Mobility decreased [Recovered/Resolved]
  - Malaise [Unknown]
  - Irritability [Recovered/Resolved]
  - Amnesia [Unknown]
  - Headache [Unknown]
